FAERS Safety Report 6867469-4 (Version None)
Quarter: 2010Q3

REPORT INFORMATION
  Report Type: 
  Country: None (occurrence: None)
  Receive Date: 20100722
  Receipt Date: 20100715
  Transmission Date: 20110219
  Serious: Yes (Hospitalization)
  Sender: FDA-Public Use
  Company Number: PHHO2010FR10689

PATIENT
  Sex: Male
  Weight: 71 kg

DRUGS (3)
  1. STI571/CGP57148B T35717+TAB [Suspect]
     Indication: ACUTE LYMPHOCYTIC LEUKAEMIA
     Dosage: UNK
     Route: 048
     Dates: start: 20070921, end: 20070928
  2. METHOTREXATE [Concomitant]
  3. CYTARABINE [Concomitant]

REACTIONS (12)
  - ANAEMIA [None]
  - AZOTAEMIA [None]
  - ERYTHEMA [None]
  - GENERAL PHYSICAL CONDITION ABNORMAL [None]
  - GRAFT VERSUS HOST DISEASE [None]
  - HYPOALBUMINAEMIA [None]
  - HYPOPROTEINAEMIA [None]
  - LYMPHOPENIA [None]
  - PRURITUS GENERALISED [None]
  - RENAL FAILURE [None]
  - SKIN EXFOLIATION [None]
  - WEIGHT DECREASED [None]
